FAERS Safety Report 8274750-3 (Version None)
Quarter: 2012Q2

REPORT INFORMATION
  Report Type: 
  Country: None (occurrence: None)
  Receive Date: 20120411
  Receipt Date: 20111215
  Transmission Date: 20120825
  Serious: No
  Sender: FDA-Public Use
  Company Number: US-TEVA-2011006310

PATIENT
  Sex: Female
  Weight: 90.8 kg

DRUGS (13)
  1. OMEPRAZOLE [Concomitant]
  2. LASIX [Concomitant]
     Dates: start: 20110901, end: 20110915
  3. MULTI-VITAMINS [Concomitant]
  4. SAVELLA [Concomitant]
  5. NUVIGIL [Suspect]
     Indication: NARCOLEPSY
     Dosage: 400 MILLIGRAM;
     Route: 048
     Dates: start: 20111210
  6. LASIX [Concomitant]
     Dates: start: 20111202
  7. OPANA IR [Concomitant]
  8. OPANA ER [Concomitant]
  9. PRAVACHOL [Concomitant]
  10. ROBAXIN [Concomitant]
  11. VITAMIN D [Concomitant]
  12. NUVIGIL [Suspect]
     Indication: CATAPLEXY
  13. SYNTHROID [Concomitant]

REACTIONS (3)
  - DRUG PRESCRIBING ERROR [None]
  - SKIN DISCOLOURATION [None]
  - OEDEMA PERIPHERAL [None]
